FAERS Safety Report 19681844 (Version 1)
Quarter: 2021Q3

REPORT INFORMATION
  Report Type: Report from Study
  Country: US (occurrence: US)
  Receive Date: 20210810
  Receipt Date: 20210810
  Transmission Date: 20211014
  Serious: Yes (Hospitalization, Other)
  Sender: FDA-Public Use
  Company Number: US-BAYER-2021-188499

PATIENT
  Age: 74 Year
  Sex: Female

DRUGS (1)
  1. ADEMPAS [Suspect]
     Active Substance: RIOCIGUAT
     Indication: PULMONARY ARTERIAL HYPERTENSION
     Dosage: 0.5 MG, TID
     Route: 048
     Dates: start: 20210712, end: 20210729

REACTIONS (6)
  - Vomiting [None]
  - Discoloured vomit [None]
  - Oesophagitis [None]
  - Dyspepsia [None]
  - Chest pain [None]
  - Gastrooesophageal reflux disease [None]

NARRATIVE: CASE EVENT DATE: 202107
